FAERS Safety Report 9321777 (Version 2)
Quarter: 2013Q3

REPORT INFORMATION
  Report Type: Spontaneous
  Country: US (occurrence: US)
  Receive Date: 20130531
  Receipt Date: 20130814
  Transmission Date: 20140515
  Serious: Yes (Hospitalization)
  Sender: FDA-Public Use
  Company Number: US-ASTRAZENECA-2013SE36386

PATIENT
  Age: 60 Year
  Sex: Male
  Weight: 114.8 kg

DRUGS (11)
  1. SYMBICORT [Suspect]
     Indication: CHRONIC OBSTRUCTIVE PULMONARY DISEASE
     Dosage: 80/4.5 TWO TIMES A DAY
     Route: 055
  2. PULMICORT RESPULES [Suspect]
     Indication: CHRONIC OBSTRUCTIVE PULMONARY DISEASE
     Dosage: 0.5 MG/ 2ML, BID
     Route: 055
  3. FUROSEMIDE [Concomitant]
     Route: 048
  4. ALLOPURINOL [Concomitant]
     Route: 048
  5. PREDNISONE [Concomitant]
     Route: 048
  6. POTASSIUM [Concomitant]
     Route: 048
  7. PEPCID [Concomitant]
     Route: 048
  8. ALBUTEROL [Concomitant]
     Dosage: QID
     Route: 055
  9. IBUPROPIUM [Concomitant]
     Dosage: 0.2/.25 QID
     Route: 050
  10. SPIRONLACTONE [Concomitant]
     Route: 048
  11. OTHER MEDICATIONS [Concomitant]

REACTIONS (3)
  - Pulmonary oedema [Unknown]
  - Headache [Unknown]
  - Off label use [Unknown]
